FAERS Safety Report 7129134-8 (Version None)
Quarter: 2010Q4

REPORT INFORMATION
  Report Type: 
  Country: None (occurrence: None)
  Receive Date: 20101130
  Receipt Date: 20101125
  Transmission Date: 20110411
  Serious: Yes (Life-Threatening, Other)
  Sender: FDA-Public Use
  Company Number: CHPA2010DK18044

PATIENT
  Age: 40 Year
  Sex: Male

DRUGS (1)
  1. NICOTINELL COATED GUM LIQUIRICE (NCH) [Suspect]
     Indication: SMOKING CESSATION THERAPY
     Dosage: 4 MG, ONCE/SINGLE
     Route: 048
     Dates: start: 20101004, end: 20101004

REACTIONS (5)
  - DYSPNOEA [None]
  - DYSSTASIA [None]
  - FALL [None]
  - LOSS OF CONSCIOUSNESS [None]
  - THROAT TIGHTNESS [None]
